FAERS Safety Report 8237891-2 (Version None)
Quarter: 2012Q1

REPORT INFORMATION
  Report Type: 
  Country: None (occurrence: None)
  Receive Date: 20120327
  Receipt Date: 20120316
  Transmission Date: 20120608
  Serious: Yes (Hospitalization)
  Sender: FDA-Public Use
  Company Number: NL-MEDIMMUNE-MEDI-0014311

PATIENT
  Sex: Male
  Weight: 6.7 kg

DRUGS (3)
  1. SYNAGIS [Suspect]
     Indication: PREMATURE BABY
     Route: 030
     Dates: start: 20110903, end: 20110929
  2. SYNAGIS [Suspect]
     Route: 030
     Dates: start: 20111027, end: 20120316
  3. SYNAGIS [Suspect]
     Route: 030
     Dates: start: 20111222, end: 20111222

REACTIONS (3)
  - COUGH [None]
  - RESPIRATORY TRACT INFECTION VIRAL [None]
  - DYSPNOEA [None]
